FAERS Safety Report 26113888 (Version 2)
Quarter: 2025Q4

REPORT INFORMATION
  Report Type: Spontaneous
  Country: BD (occurrence: BD)
  Receive Date: 20251202
  Receipt Date: 20251230
  Transmission Date: 20260117
  Serious: No
  Sender: NOVO NORDISK
  Company Number: BD-NOVOPROD-1574598

PATIENT
  Age: 68 Year
  Sex: Female

DRUGS (1)
  1. INSULIN HUMAN [Suspect]
     Active Substance: INSULIN HUMAN
     Indication: Type 2 diabetes mellitus
     Dosage: 22 IU, QD(10 IU MORNING AND 12 IU NIGHT)
     Route: 058
     Dates: start: 20251123, end: 20251125

REACTIONS (3)
  - Injection site infection [Recovering/Resolving]
  - Injection site swelling [Recovering/Resolving]
  - Injection site induration [Recovering/Resolving]

NARRATIVE: CASE EVENT DATE: 20251123
